FAERS Safety Report 6238846-X (Version None)
Quarter: 2009Q2

REPORT INFORMATION
  Report Type: 
  Country: None (occurrence: None)
  Receive Date: 20090617
  Receipt Date: 20090617
  Transmission Date: 20091009
  Serious: Yes (Other)
  Sender: FDA-Public Use
  Company Number: None

PATIENT
  Age: 38 Year
  Sex: Female
  Weight: 50.8029 kg

DRUGS (1)
  1. CELEXA [Suspect]
     Indication: DEPRESSION
     Dosage: ONE EIGHTH OF TABLET THEN 1/4 DAILY PO MONTH AND HALF
     Route: 048
     Dates: start: 20070403, end: 20070519

REACTIONS (5)
  - DEPRESSION [None]
  - FLAT AFFECT [None]
  - INSOMNIA [None]
  - PRIAPISM [None]
  - SUICIDAL IDEATION [None]
